FAERS Safety Report 16208349 (Version 4)
Quarter: 2020Q3

REPORT INFORMATION
  Report Type: Spontaneous
  Country: US (occurrence: US)
  Receive Date: 20190417
  Receipt Date: 20200928
  Transmission Date: 20201102
  Serious: Yes (Other)
  Sender: FDA-Public Use
  Company Number: US-GILEAD-2019-0402564

PATIENT
  Age: 55 Year
  Sex: Male
  Weight: 90.7 kg

DRUGS (6)
  1. ASPIRIN (E.C.) [Concomitant]
     Active Substance: ASPIRIN
  2. ALBUTEROL HFA [Concomitant]
     Active Substance: ALBUTEROL SULFATE
  3. HYDROCODONE/ACETAMINOPHEN [Concomitant]
     Active Substance: ACETAMINOPHEN\HYDROCODONE
  4. ZITHROMAX [Concomitant]
     Active Substance: AZITHROMYCIN DIHYDRATE
  5. ACETAMINOPHEN. [Concomitant]
     Active Substance: ACETAMINOPHEN
  6. ATRIPLA [Suspect]
     Active Substance: EFAVIRENZ\EMTRICITABINE\TENOFOVIR DISOPROXIL FUMARATE
     Indication: ACQUIRED IMMUNODEFICIENCY SYNDROME
     Dosage: UNK
     Route: 048
     Dates: start: 2007, end: 2019

REACTIONS (16)
  - Anhedonia [Not Recovered/Not Resolved]
  - Hand fracture [Not Recovered/Not Resolved]
  - Multiple fractures [Not Recovered/Not Resolved]
  - Comminuted fracture [Not Recovered/Not Resolved]
  - Fatigue [Unknown]
  - Pain [Not Recovered/Not Resolved]
  - Emotional distress [Not Recovered/Not Resolved]
  - Loss of personal independence in daily activities [Unknown]
  - Foot fracture [Not Recovered/Not Resolved]
  - Economic problem [Not Recovered/Not Resolved]
  - Osteoarthritis [Not Recovered/Not Resolved]
  - Anxiety [Not Recovered/Not Resolved]
  - Bone density decreased [Not Recovered/Not Resolved]
  - Mallet finger [Not Recovered/Not Resolved]
  - Arthralgia [Unknown]
  - Limb injury [Not Recovered/Not Resolved]

NARRATIVE: CASE EVENT DATE: 200704
